FAERS Safety Report 6541398-8 (Version None)
Quarter: 2010Q1

REPORT INFORMATION
  Report Type: 
  Country: None (occurrence: None)
  Receive Date: 20100118
  Receipt Date: 20091204
  Transmission Date: 20100710
  Serious: Yes (Hospitalization, Other)
  Sender: FDA-Public Use
  Company Number: US-BAXTER-2009BH012612

PATIENT
  Age: 46 Year
  Sex: Male
  Weight: 90 kg

DRUGS (10)
  1. HEPARIN SODIUM INJECTION [Suspect]
     Indication: CATHETERISATION CARDIAC
     Route: 065
     Dates: start: 20070804
  2. HEPARIN SODIUM INJECTION [Suspect]
     Route: 042
     Dates: start: 20070805, end: 20070805
  3. HEPARIN SODIUM INJECTION [Suspect]
     Route: 042
     Dates: start: 20070804, end: 20070804
  4. HEPARIN SODIUM 5,000 UNITS IN DEXTROSE 5% [Suspect]
     Indication: MYOCARDIAL INFARCTION
     Route: 041
     Dates: start: 20070805, end: 20070807
  5. ACETYLCYSTEINE [Concomitant]
     Indication: DRUG USE FOR UNKNOWN INDICATION
     Route: 065
  6. ASPIRIN [Concomitant]
     Indication: DRUG USE FOR UNKNOWN INDICATION
     Route: 065
  7. PLAVIX [Concomitant]
     Indication: DRUG USE FOR UNKNOWN INDICATION
     Route: 065
  8. SIMVASTATIN [Concomitant]
     Indication: DRUG USE FOR UNKNOWN INDICATION
     Route: 065
  9. CHANTIX [Concomitant]
     Indication: DRUG USE FOR UNKNOWN INDICATION
     Route: 065
  10. REOPRO [Concomitant]
     Indication: DRUG USE FOR UNKNOWN INDICATION
     Route: 065

REACTIONS (4)
  - DIZZINESS [None]
  - HYPOTENSION [None]
  - LOSS OF CONSCIOUSNESS [None]
  - RENAL FAILURE CHRONIC [None]
